FAERS Safety Report 7866662-1 (Version None)
Quarter: 2011Q4

REPORT INFORMATION
  Report Type: 
  Country: None (occurrence: None)
  Receive Date: 20111028
  Receipt Date: 20110721
  Transmission Date: 20120403
  Serious: No
  Sender: FDA-Public Use
  Company Number: US-GLAXOSMITHKLINE-A0937561A

PATIENT
  Age: 67 Year
  Sex: Male

DRUGS (6)
  1. ANTACID(NAME UNKNOWN) [Concomitant]
  2. LISINOPRIL [Concomitant]
  3. ADVAIR DISKUS 100/50 [Suspect]
     Indication: DYSPNOEA
     Dosage: 1PUFF PER DAY
     Route: 055
     Dates: start: 20010101, end: 20110501
  4. PROVENTIL [Concomitant]
  5. UNKNOWN DRUG FOR ANXIETY [Concomitant]
  6. GLIMEPIRIDE [Concomitant]

REACTIONS (6)
  - ANXIETY [None]
  - PALPITATIONS [None]
  - BLOOD PRESSURE INCREASED [None]
  - HEART RATE INCREASED [None]
  - MIDDLE INSOMNIA [None]
  - CARDIAC DISORDER [None]
